FAERS Safety Report 9307965 (Version 1)
Quarter: 2013Q2

REPORT INFORMATION
  Report Type: Spontaneous
  Country: JP (occurrence: JP)
  Receive Date: 20130524
  Receipt Date: 20130524
  Transmission Date: 20140414
  Serious: Yes (Other)
  Sender: FDA-Public Use
  Company Number: JP-ASTELLAS-2013JP006064

PATIENT
  Age: 48 Year
  Sex: Female

DRUGS (4)
  1. PROGRAF [Suspect]
     Indication: NEUROMYELITIS OPTICA
     Dosage: 3 MG, UNKNOWN/D
     Route: 065
     Dates: start: 201103
  2. INTERFERON BETA-1A [Concomitant]
     Dosage: UNK
     Route: 065
     Dates: start: 200802
  3. AZATHIOPRINE [Concomitant]
     Dosage: 50 MG, UNKNOWN/D
     Route: 065
     Dates: start: 200901, end: 201006
  4. AZATHIOPRINE [Concomitant]
     Dosage: 50 MG, UNKNOWN/D
     Route: 065

REACTIONS (2)
  - Drug ineffective for unapproved indication [Unknown]
  - Neuromyelitis optica [Recovering/Resolving]
